FAERS Safety Report 13184469 (Version 3)
Quarter: 2017Q2

REPORT INFORMATION
  Report Type: Report from Study
  Country: US (occurrence: US)
  Receive Date: 20170203
  Receipt Date: 20170424
  Transmission Date: 20170830
  Serious: Yes (Hospitalization)
  Sender: FDA-Public Use
  Company Number: US-009507513-1701USA011425

PATIENT
  Age: 62 Year
  Sex: Male
  Weight: 83.46 kg

DRUGS (11)
  1. LORAZEPAM. [Concomitant]
     Active Substance: LORAZEPAM
     Indication: PROPHYLAXIS OF NAUSEA AND VOMITING
     Dosage: TOTAL DAILY DOSE: 0.5 MG, PRN
     Route: 048
     Dates: start: 20161230
  2. ZOFRAN [Concomitant]
     Active Substance: ONDANSETRON HYDROCHLORIDE
     Indication: PROPHYLAXIS OF NAUSEA AND VOMITING
     Dosage: UNK, PRIOR TO TAKING TEMOZOLOMIDE (TEMODAR)
     Route: 048
     Dates: start: 20161230
  3. ERGOCALCIFEROL. [Concomitant]
     Active Substance: ERGOCALCIFEROL
     Indication: VITAMIN D DEFICIENCY
     Dosage: 50000 IU, QW
     Route: 048
     Dates: start: 20161024
  4. TEMODAR [Suspect]
     Active Substance: TEMOZOLOMIDE
     Indication: GLIOBLASTOMA
     Dosage: 75 MG/M2, CYCLICAL FOR 5 DAYS OF 28 DAY CYCLE,
     Route: 048
     Dates: start: 20160919, end: 20161030
  5. TEMODAR [Suspect]
     Active Substance: TEMOZOLOMIDE
     Dosage: 150 MG/M2, DAYS 1-5 OF EACH 28 DAY CYCLE FOR 6 CYCLES
     Route: 048
     Dates: start: 20161129, end: 20161203
  6. FOLBEE [Concomitant]
     Active Substance: CYANOCOBALAMIN\FOLIC ACID\PYRIDOXINE HYDROCHLORIDE
     Indication: BLOOD HOMOCYSTEINE INCREASED
     Dosage: 1 TABLET, QD
     Route: 048
     Dates: start: 20161025
  7. TYLENOL [Concomitant]
     Active Substance: ACETAMINOPHEN
     Indication: OCULAR DISCOMFORT
     Dosage: TOTAL DAILY DOSE: 500 MG, PRN
     Route: 048
     Dates: start: 20161024
  8. COLACE [Concomitant]
     Active Substance: DOCUSATE SODIUM
     Indication: CONSTIPATION
     Dosage: TOTAL DAILY DOSE:100 MG AS REQUIRED (ALSO REPORTED AS TWICE DAILY AS NEEDED)
     Route: 048
     Dates: start: 20160919, end: 20170106
  9. TEMODAR [Suspect]
     Active Substance: TEMOZOLOMIDE
     Dosage: 200 MG/M2, DAYS 1-5 OF EACH 28 DAY CYCLE FOR 6 CYCLES
     Route: 048
     Dates: start: 20161227
  10. NORVASC [Concomitant]
     Active Substance: AMLODIPINE BESYLATE
     Indication: HYPERTENSION
     Dosage: 7.5 MG, QD
     Route: 048
     Dates: start: 20160901
  11. POLYTRIM [Concomitant]
     Active Substance: POLYMYXIN B SULFATE\TRIMETHOPRIM SULFATE
     Indication: EYE INFECTION
     Dosage: TOTAL DAILY DOSE: 1000-0.1 %
     Route: 047
     Dates: start: 20161110

REACTIONS (4)
  - Fatigue [Recovered/Resolved]
  - Dehydration [Recovered/Resolved]
  - Nausea [Recovered/Resolved]
  - Constipation [Recovered/Resolved]

NARRATIVE: CASE EVENT DATE: 20170103
